FAERS Safety Report 21382101 (Version 1)
Quarter: 2022Q3

REPORT INFORMATION
  Report Type: Spontaneous
  Country: US (occurrence: US)
  Receive Date: 20220927
  Receipt Date: 20220927
  Transmission Date: 20221027
  Serious: Yes (Hospitalization)
  Sender: FDA-Public Use
  Company Number: US-ELI_LILLY_AND_COMPANY-US202209010553

PATIENT
  Sex: Male

DRUGS (13)
  1. MOUNJARO [Suspect]
     Active Substance: TIRZEPATIDE
     Indication: Type 2 diabetes mellitus
     Dosage: 2.5 MG, UNKNOWN
     Route: 058
  2. TALTZ [Suspect]
     Active Substance: IXEKIZUMAB
     Indication: Psoriasis
     Dosage: UNK UNK, UNKNOWN
     Route: 065
  3. TALTZ [Suspect]
     Active Substance: IXEKIZUMAB
     Indication: Arthritis
  4. BASAGLAR [Suspect]
     Active Substance: INSULIN GLARGINE
     Indication: Type 2 diabetes mellitus
     Dosage: SLIDING SCALE WITH BREAKFAST AND DINNER, BID
     Route: 065
  5. DEXAMETHASONE [Concomitant]
     Active Substance: DEXAMETHASONE
     Indication: Neoplasm malignant
     Dosage: UNK, UNKNOWN
     Route: 065
  6. NOVOLOG [Concomitant]
     Active Substance: INSULIN ASPART
     Indication: Type 2 diabetes mellitus
     Dosage: SLIDING SCALE, TID
     Route: 065
  7. COSENTYX [Concomitant]
     Active Substance: SECUKINUMAB
     Indication: Psoriasis
     Dosage: UNK, UNKNOWN
     Route: 065
  8. TREMFYA [Concomitant]
     Active Substance: GUSELKUMAB
     Indication: Psoriasis
     Dosage: UNK, UNKNOWN
     Route: 065
  9. POMALYST [Concomitant]
     Active Substance: POMALIDOMIDE
     Indication: Neoplasm malignant
     Dosage: UNK, UNKNOWN
     Route: 065
  10. ENBREL [Concomitant]
     Active Substance: ETANERCEPT
     Indication: Psoriasis
     Dosage: UNK, UNKNOWN
     Route: 065
  11. REMICADE [Concomitant]
     Active Substance: INFLIXIMAB
     Indication: Psoriasis
     Dosage: UNK, UNKNOWN
     Route: 065
  12. DUPIXENT [Concomitant]
     Active Substance: DUPILUMAB
     Dosage: UNK, UNKNOWN
     Route: 065
  13. SKYRIZI [Concomitant]
     Active Substance: RISANKIZUMAB-RZAA
     Indication: Psoriasis
     Dosage: UNK, UNKNOWN
     Route: 065

REACTIONS (8)
  - Acute respiratory distress syndrome [Unknown]
  - Ligament sprain [Recovered/Resolved]
  - Weight increased [Unknown]
  - Wheezing [Unknown]
  - Arthropathy [Unknown]
  - Irritable bowel syndrome [Unknown]
  - Decreased appetite [Unknown]
  - Extra dose administered [Unknown]
